FAERS Safety Report 18668967 (Version 1)
Quarter: 2020Q4

REPORT INFORMATION
  Report Type: Spontaneous
  Country: US (occurrence: US)
  Receive Date: 20201224
  Receipt Date: 20201224
  Transmission Date: 20210114
  Serious: Yes (Death, Hospitalization)
  Sender: FDA-Public Use
  Company Number: None

PATIENT
  Sex: Male
  Weight: 69 kg

DRUGS (6)
  1. VINCRISTINE SULFATE. [Suspect]
     Active Substance: VINCRISTINE SULFATE
     Dates: end: 20201027
  2. DAUNORUBICIN [Suspect]
     Active Substance: DAUNORUBICIN
     Dates: end: 20201020
  3. CYTARABINE (63878) [Suspect]
     Active Substance: CYTARABINE
     Dates: end: 20201013
  4. METHOTREXATE. [Suspect]
     Active Substance: METHOTREXATE
     Dates: end: 20201020
  5. ONCASPAR [Suspect]
     Active Substance: PEGASPARGASE
     Dates: end: 20201016
  6. PREDNISOLONE. [Suspect]
     Active Substance: PREDNISOLONE
     Dates: end: 20201030

REACTIONS (6)
  - Dyspnoea [None]
  - Hypotension [None]
  - Chest pain [None]
  - Pulseless electrical activity [None]
  - Cardio-respiratory arrest [None]
  - Unresponsive to stimuli [None]

NARRATIVE: CASE EVENT DATE: 20171031
